FAERS Safety Report 12217479 (Version 2)
Quarter: 2016Q2

REPORT INFORMATION
  Report Type: Report from Study
  Country: US (occurrence: US)
  Receive Date: 20160329
  Receipt Date: 20160503
  Transmission Date: 20160815
  Serious: Yes (Death)
  Sender: FDA-Public Use
  Company Number: US-ROCHE-1732847

PATIENT
  Age: 57 Year
  Sex: Female

DRUGS (5)
  1. AVASTIN [Suspect]
     Active Substance: BEVACIZUMAB
     Route: 065
     Dates: start: 20150422
  2. FOLINIC ACID [Concomitant]
     Active Substance: LEUCOVORIN
  3. AVASTIN [Suspect]
     Active Substance: BEVACIZUMAB
     Indication: COLON CANCER
     Dosage: IVP OVER 30 MINUTES MIXED IN 100ML FLUID
     Route: 065
     Dates: start: 20151117
  4. IRINOTECAN [Concomitant]
     Active Substance: IRINOTECAN
  5. FLUOROURACIL. [Concomitant]
     Active Substance: FLUOROURACIL

REACTIONS (1)
  - Death [Fatal]

NARRATIVE: CASE EVENT DATE: 20160313
